FAERS Safety Report 7271948-8 (Version None)
Quarter: 2011Q1

REPORT INFORMATION
  Report Type: 
  Country: None (occurrence: None)
  Receive Date: 20110131
  Receipt Date: 20110131
  Transmission Date: 20110831
  Serious: Yes (Life-Threatening, Hospitalization, Disabling, Other)
  Sender: FDA-Public Use
  Company Number: None

PATIENT
  Sex: Male
  Weight: 97.7 kg

DRUGS (2)
  1. CELEBREX [Suspect]
     Indication: TENDONITIS
     Dosage: CELEBREX 200 MG 2 X DAY MOUTH (FEBRUARY 24 TO MARCH 25)
     Route: 048
  2. NAPROXEN SODIUM [Suspect]
     Indication: TENDONITIS
     Dosage: NAPROXAN SODIUM MOUTH (LATE JANUARY TO FEBRUARY 24
     Route: 048

REACTIONS (3)
  - CEREBROVASCULAR ACCIDENT [None]
  - MYOCARDIAL INFARCTION [None]
  - INCONTINENCE [None]
